FAERS Safety Report 4566006-7 (Version None)
Quarter: 2005Q1

REPORT INFORMATION
  Report Type: 
  Country: None (occurrence: None)
  Receive Date: 20050128
  Receipt Date: 20050113
  Transmission Date: 20050727
  Serious: Yes (Other)
  Sender: FDA-Public Use
  Company Number: 2005-00139

PATIENT
  Age: 2 Month
  Sex: Female
  Weight: 6 kg

DRUGS (2)
  1. BETAMETHASONE [Suspect]
     Indication: HAEMANGIOMA
     Dosage: 0.3 MG/KG, DAILY,
  2. BETAMETHASONE [Suspect]
     Indication: HAEMANGIOMA
     Dosage: 0.3 MG/KG, DAILY,

REACTIONS (1)
  - HYPERTROPHIC OBSTRUCTIVE CARDIOMYOPATHY [None]
